FAERS Safety Report 18526954 (Version 2)
Quarter: 2020Q4

REPORT INFORMATION
  Report Type: Other
  Country: US (occurrence: US)
  Receive Date: 20201120
  Receipt Date: 20201215
  Transmission Date: 20210114
  Serious: Yes (Hospitalization, Other)
  Sender: FDA-Public Use
  Company Number: US-ROCHE-2675786

PATIENT
  Age: 42 Year
  Sex: Male
  Weight: 68.1 kg

DRUGS (2)
  1. OCREVUS [Suspect]
     Active Substance: OCRELIZUMAB
     Indication: RELAPSING MULTIPLE SCLEROSIS
     Route: 065
     Dates: start: 20180116, end: 20180213
  2. OCREVUS [Suspect]
     Active Substance: OCRELIZUMAB
     Route: 042
     Dates: start: 2016

REACTIONS (13)
  - Deafness [Not Recovered/Not Resolved]
  - Road traffic accident [Unknown]
  - Musculoskeletal discomfort [Not Recovered/Not Resolved]
  - Hunger [Recovered/Resolved]
  - Skin laceration [Unknown]
  - Spinal disorder [Unknown]
  - Disability [Unknown]
  - Staphylococcal infection [Unknown]
  - Injury [Unknown]
  - Optic neuritis [Not Recovered/Not Resolved]
  - Multiple sclerosis [Not Recovered/Not Resolved]
  - Therapy cessation [Not Recovered/Not Resolved]
  - Fall [Unknown]

NARRATIVE: CASE EVENT DATE: 20180116
